FAERS Safety Report 8873723 (Version 1)
Quarter: 2012Q4

REPORT INFORMATION
  Report Type: 
  Country: US (occurrence: US)
  Receive Date: 20121023
  Receipt Date: 20121023
  Transmission Date: 20130627
  Serious: No
  Sender: FDA-Public Use
  Company Number: US-ASTELLAS-2011US005448

PATIENT

DRUGS (3)
  1. LEXISCAN [Suspect]
     Indication: SCAN MYOCARDIAL PERFUSION
     Dosage: UNK
     Route: 042
     Dates: start: 20110819, end: 20110819
  2. DRONEDARONE [Suspect]
     Indication: CARDIAC DISORDER
     Dosage: UNK
     Route: 065
  3. DIGOXIN [Concomitant]
     Indication: CARDIAC DISORDER
     Dosage: UNK
     Route: 065

REACTIONS (6)
  - Salivary hypersecretion [Recovered/Resolved]
  - Skin tightness [Unknown]
  - Oedema peripheral [Recovering/Resolving]
  - Hypersensitivity [Unknown]
  - Urticaria [Recovered/Resolved]
  - Rash pruritic [Recovered/Resolved]
